FAERS Safety Report 10022150 (Version 4)
Quarter: 2016Q1

REPORT INFORMATION
  Report Type: Spontaneous
  Country: US (occurrence: US)
  Receive Date: 20140319
  Receipt Date: 20160219
  Transmission Date: 20160525
  Serious: Yes (Hospitalization, Other)
  Sender: FDA-Public Use
  Company Number: US-GLAXOSMITHKLINE-A1065635A

PATIENT
  Sex: Female

DRUGS (2)
  1. VENTOLIN HFA [Suspect]
     Active Substance: ALBUTEROL SULFATE
     Indication: ASTHMA
     Dosage: 90 MCG, UNKNOWN DOSING
     Route: 065
     Dates: start: 20110906
  2. ADVAIR DISKUS [Suspect]
     Active Substance: FLUTICASONE PROPIONATE\SALMETEROL XINAFOATE
     Indication: ASTHMA
     Dosage: UNK, U

REACTIONS (6)
  - Anxiety [Unknown]
  - Incorrect dose administered [Unknown]
  - Influenza [Unknown]
  - Loss of consciousness [Unknown]
  - Drug dose omission [Unknown]
  - Malaise [Unknown]

NARRATIVE: CASE EVENT DATE: 2001
